FAERS Safety Report 4546064-6 (Version None)
Quarter: 2005Q1

REPORT INFORMATION
  Report Type: 
  Country: None (occurrence: None)
  Receive Date: 20050105
  Receipt Date: 20050105
  Transmission Date: 20050727
  Serious: Yes (Hospitalization)
  Sender: FDA-Public Use
  Company Number: None

PATIENT
  Age: 49 Year
  Sex: Female
  Weight: 123.9 kg

DRUGS (3)
  1. KEROROLAC 30MG IVP [Suspect]
     Indication: POSTOPERATIVE ANALGESIA
     Dosage: KEROROLAC 30MG IVP
     Route: 042
     Dates: start: 20041013
  2. ADVAIR DISKUS 100/50 [Concomitant]
  3. ALBUTEROL [Concomitant]

REACTIONS (3)
  - HYPOTENSION [None]
  - HYPOVOLAEMIA [None]
  - POST PROCEDURAL COMPLICATION [None]
